FAERS Safety Report 10611987 (Version 1)
Quarter: 2014Q4

REPORT INFORMATION
  Report Type: Spontaneous
  Country: TW (occurrence: TW)
  Receive Date: 20141126
  Receipt Date: 20141126
  Transmission Date: 20150529
  Serious: Yes (Death)
  Sender: FDA-Public Use
  Company Number: TW-CUBIST PHARMACEUTICALS, INC.-2014CBST001570

PATIENT

DRUGS (10)
  1. IMIPENEM [Concomitant]
     Active Substance: IMIPENEM
     Indication: PROPHYLAXIS
     Dosage: UNK UNK, UNK
     Route: 065
  2. PROTON PUMP INHIBITORS [Concomitant]
     Active Substance: UNSPECIFIED INGREDIENT
     Indication: PRODUCT USED FOR UNKNOWN INDICATION
     Dosage: UNK UNK, UNK
     Route: 048
  3. CUBICIN [Suspect]
     Active Substance: DAPTOMYCIN
     Indication: MULTI-ORGAN DISORDER
     Dosage: UNK UNK, UNK
     Route: 065
  4. CUBICIN [Suspect]
     Active Substance: DAPTOMYCIN
     Indication: OFF LABEL USE
  5. HUMAN ALBUMIN [Concomitant]
     Active Substance: ALBUMIN (HUMAN)
     Indication: PRODUCT USED FOR UNKNOWN INDICATION
     Dosage: UNK UNK, UNK
     Route: 065
  6. IMMUNOGLOBULIN [Concomitant]
     Active Substance: HUMAN IMMUNOGLOBULIN G
     Indication: PRODUCT USED FOR UNKNOWN INDICATION
     Dosage: 0.4 MG/KG, QD
     Route: 042
  7. METHYLPREDNISOLONE. [Concomitant]
     Active Substance: METHYLPREDNISOLONE
     Indication: PRODUCT USED FOR UNKNOWN INDICATION
     Dosage: 250 MG, QD
     Route: 065
  8. LOOP DIURETICS [Concomitant]
     Indication: PRODUCT USED FOR UNKNOWN INDICATION
     Dosage: UNK UNK, UNK
     Route: 042
  9. HEPARIN [Concomitant]
     Active Substance: HEPARIN SODIUM
     Indication: PRODUCT USED FOR UNKNOWN INDICATION
     Dosage: UNK UNK, UNK
     Route: 065
  10. OXACILLIN [Concomitant]
     Active Substance: OXACILLIN SODIUM
     Indication: CELLULITIS
     Dosage: 2.0 G, Q4H
     Route: 042

REACTIONS (2)
  - Histiocytosis haematophagic [Fatal]
  - Off label use [Unknown]
